FAERS Safety Report 24135916 (Version 1)
Quarter: 2024Q3

REPORT INFORMATION
  Report Type: Other
  Country: CN (occurrence: CN)
  Receive Date: 20240725
  Receipt Date: 20240725
  Transmission Date: 20241017
  Serious: Yes (Life-Threatening)
  Sender: B BRAUN
  Company Number: CN-B.Braun Medical Inc.-2159561

PATIENT
  Age: 57 Year
  Sex: Male

DRUGS (8)
  1. DEXTROSE\LIDOCAINE HYDROCHLORIDE [Suspect]
     Active Substance: DEXTROSE\LIDOCAINE HYDROCHLORIDE
     Indication: Ventricular tachycardia
  2. DOPAMINE [Suspect]
     Active Substance: DOPAMINE HYDROCHLORIDE
  3. SINTILIMAB [Concomitant]
     Active Substance: SINTILIMAB
  4. Gemcitabine/carboplatin [Concomitant]
  5. IMMUNE GLOBULIN NOS [Suspect]
     Active Substance: IMMUNE GLOBULIN NOS
  6. METHYLPREDNISOLONE [Suspect]
     Active Substance: METHYLPREDNISOLONE
  7. AMIODARONE [Suspect]
     Active Substance: AMIODARONE
  8. NOREPINEPHRINE [Suspect]
     Active Substance: NOREPINEPHRINE\NOREPINEPHRINE BITARTRATE

REACTIONS (1)
  - Drug ineffective [Unknown]
